FAERS Safety Report 4930520-2 (Version None)
Quarter: 2006Q1

REPORT INFORMATION
  Report Type: 
  Country: None (occurrence: None)
  Receive Date: 20060302
  Receipt Date: 20030605
  Transmission Date: 20060701
  Serious: Yes (Hospitalization, Disabling)
  Sender: FDA-Public Use
  Company Number: US-MERCK-0306USA00853

PATIENT
  Age: 45 Year
  Sex: Female
  Weight: 138 kg

DRUGS (1)
  1. VIOXX [Suspect]
     Indication: ARTHRITIS
     Route: 048
     Dates: start: 20000201, end: 20031101

REACTIONS (16)
  - ADVERSE EVENT [None]
  - ARTHRALGIA [None]
  - ARTHRITIS [None]
  - BODY TINEA [None]
  - CANDIDIASIS [None]
  - DRUG INEFFECTIVE [None]
  - FLUID RETENTION [None]
  - HEADACHE [None]
  - HYPERTENSION [None]
  - OBESITY [None]
  - OSTEOARTHRITIS [None]
  - SWELLING [None]
  - SYNCOPE [None]
  - TINEA INFECTION [None]
  - UPPER RESPIRATORY TRACT INFECTION [None]
  - URINARY TRACT INFECTION [None]
